FAERS Safety Report 12723419 (Version 1)
Quarter: 2016Q3

REPORT INFORMATION
  Report Type: Spontaneous
  Country: US (occurrence: US)
  Receive Date: 20160908
  Receipt Date: 20160908
  Transmission Date: 20161109
  Serious: No
  Sender: FDA-Public Use
  Company Number: US-BAYER-2016-174041

PATIENT
  Age: 78 Year
  Sex: Male
  Weight: 90.7 kg

DRUGS (1)
  1. MIRALAX [Suspect]
     Active Substance: POLYETHYLENE GLYCOL 3350
     Indication: GASTROINTESTINAL DISORDER
     Dosage: 1/3 DOSE DAILY
     Route: 048
     Dates: start: 2014, end: 201609

REACTIONS (2)
  - Product use issue [None]
  - Expired product administered [None]

NARRATIVE: CASE EVENT DATE: 2014
